FAERS Safety Report 23252669 (Version 1)
Quarter: 2023Q4

REPORT INFORMATION
  Report Type: Spontaneous
  Country: US (occurrence: None)
  Receive Date: 20231201
  Receipt Date: 20231201
  Transmission Date: 20240110
  Serious: Yes (Other)
  Sender: FDA-Public Use
  Company Number: None

PATIENT
  Age: 43 Year
  Sex: Female

DRUGS (2)
  1. ICATIBANT [Suspect]
     Active Substance: ICATIBANT ACETATE
     Indication: Immune system disorder
     Dosage: FREQUENCY : AS NEEDED;?
     Route: 058
  2. ORLADEYO [Suspect]
     Active Substance: BEROTRALSTAT HYDROCHLORIDE

REACTIONS (1)
  - Pain [None]
